FAERS Safety Report 5622976-7 (Version None)
Quarter: 2008Q1

REPORT INFORMATION
  Report Type: 
  Country: None (occurrence: None)
  Receive Date: 20080207
  Receipt Date: 20080131
  Transmission Date: 20080703
  Serious: Yes (Hospitalization)
  Sender: FDA-Public Use
  Company Number: 163-20785-08020098

PATIENT
  Age: 70 Year
  Sex: Male
  Weight: 109.7 kg

DRUGS (17)
  1. THALOMID [Suspect]
     Indication: MULTIPLE MYELOMA
     Dosage: 200-100MG, ORAL : 50 MG, DAILY AT BEDTIME, ORAL
     Route: 048
     Dates: start: 20040914, end: 20071208
  2. DEXAMETHASONE TAB [Suspect]
     Indication: MULTIPLE MYELOMA
     Dosage: 40 MG : 12 MG, DAYS 1-4 EVERY 21 DAYS, ORAL
     Route: 048
     Dates: start: 20061107, end: 20071115
  3. DEXAMETHASONE TAB [Suspect]
     Indication: MULTIPLE MYELOMA
     Dosage: 40 MG : 12 MG, DAYS 1-4 EVERY 21 DAYS, ORAL
     Route: 048
     Dates: start: 20040915
  4. CENTRUM SILVER (CENTRUM SILVER) (TABLETS) [Concomitant]
  5. ATIVAN [Concomitant]
  6. ACYCLOVIR (ACICLOVIR) (CAPSULES) [Concomitant]
  7. MAGNESIUM (MAGNESIUM) (TABLETS) [Concomitant]
  8. POTASSIUM CHLORIDE [Concomitant]
  9. METAMUCIL (METAMUCIL) (CAPSULES) [Concomitant]
  10. DIGOXIN [Concomitant]
  11. SENNA (SENNA) (TABLETS) [Concomitant]
  12. METOPROLOL TARTRATE [Concomitant]
  13. LANOXIN [Concomitant]
  14. CYMBALTA [Concomitant]
  15. LOVENOX [Concomitant]
  16. TEQUIN (GATIFLOXACIN) (SOLUTION) [Concomitant]
  17. LANTUS (INSULIN GLARGINE) (SOLUTION) [Concomitant]

REACTIONS (5)
  - ACUTE RESPIRATORY FAILURE [None]
  - BLOOD CULTURE POSITIVE [None]
  - LOBAR PNEUMONIA [None]
  - PNEUMONIA HAEMOPHILUS [None]
  - PNEUMONIA STREPTOCOCCAL [None]
